FAERS Safety Report 24591821 (Version 1)
Quarter: 2024Q4

REPORT INFORMATION
  Report Type: Spontaneous
  Country: CN (occurrence: CN)
  Receive Date: 20241108
  Receipt Date: 20241108
  Transmission Date: 20250115
  Serious: Yes (Other)
  Sender: ACCORD
  Company Number: CN-MLMSERVICE-20241023-PI236158-00082-1

PATIENT
  Age: 45 Year
  Sex: Female

DRUGS (4)
  1. CARBOPLATIN [Suspect]
     Active Substance: CARBOPLATIN
     Indication: Lung adenocarcinoma stage IV
     Dosage: THREE-CYCLE CHEMOTHERAPY REGIMEN
     Dates: start: 202205, end: 2022
  2. PEMETREXED [Suspect]
     Active Substance: PEMETREXED
     Indication: Lung adenocarcinoma stage IV
     Dosage: THREE-CYCLE CHEMOTHERAPY REGIMEN
     Dates: start: 202205, end: 2022
  3. CARBOPLATIN [Suspect]
     Active Substance: CARBOPLATIN
     Indication: Metastases to central nervous system
     Dosage: THREE-CYCLE CHEMOTHERAPY REGIMEN
     Dates: start: 202205, end: 2022
  4. PEMETREXED [Suspect]
     Active Substance: PEMETREXED
     Indication: Metastases to central nervous system
     Dosage: THREE-CYCLE CHEMOTHERAPY REGIMEN
     Dates: start: 202205, end: 2022

REACTIONS (1)
  - Acute kidney injury [Unknown]

NARRATIVE: CASE EVENT DATE: 20220101
